FAERS Safety Report 6574070-9 (Version None)
Quarter: 2010Q1

REPORT INFORMATION
  Report Type: 
  Country: None (occurrence: None)
  Receive Date: 20100208
  Receipt Date: 20100125
  Transmission Date: 20100710
  Serious: Yes (Disabling)
  Sender: FDA-Public Use
  Company Number: DK-BAYER-200910052GPV

PATIENT
  Age: 41 Year
  Sex: Female

DRUGS (1)
  1. MAGNEVIST [Suspect]
     Indication: SCAN WITH CONTRAST
     Route: 042
     Dates: start: 20080110, end: 20080110

REACTIONS (15)
  - ARTHRALGIA [None]
  - ARTHRITIS REACTIVE [None]
  - ERYTHEMA [None]
  - FATIGUE [None]
  - HYPERSENSITIVITY [None]
  - INFLUENZA LIKE ILLNESS [None]
  - INJECTION SITE PRURITUS [None]
  - INJECTION SITE SWELLING [None]
  - JOINT SWELLING [None]
  - MYALGIA [None]
  - OEDEMA [None]
  - PAIN [None]
  - SKIN DISORDER [None]
  - SOMNOLENCE [None]
  - URTICARIA [None]
